FAERS Safety Report 20132582 (Version 2)
Quarter: 2022Q1

REPORT INFORMATION
  Report Type: Spontaneous
  Country: US (occurrence: US)
  Receive Date: 20211130
  Receipt Date: 20220119
  Transmission Date: 20220423
  Serious: No
  Sender: FDA-Public Use
  Company Number: US-IBSA PHARMA INC.-2021IBS000247

PATIENT

DRUGS (3)
  1. TIROSINT [Suspect]
     Active Substance: LEVOTHYROXINE SODIUM
     Indication: Thyroid hormone replacement therapy
     Dosage: 75 ?G, QOD
     Route: 048
     Dates: start: 2015, end: 2017
  2. TIROSINT [Suspect]
     Active Substance: LEVOTHYROXINE SODIUM
     Dosage: 50 ?G, QOD
     Route: 048
     Dates: start: 2015, end: 2017
  3. TIROSINT [Suspect]
     Active Substance: LEVOTHYROXINE SODIUM
     Dosage: UNK
     Route: 048
     Dates: start: 2018

REACTIONS (6)
  - Abdominal distension [Recovering/Resolving]
  - Eructation [Recovering/Resolving]
  - Gastrointestinal sounds abnormal [Recovering/Resolving]
  - Gastrointestinal bacterial overgrowth [Recovering/Resolving]
  - Abdominal pain upper [Recovering/Resolving]
  - Thyroid function test abnormal [Unknown]
